FAERS Safety Report 17543133 (Version 1)
Quarter: 2020Q1

REPORT INFORMATION
  Report Type: Spontaneous
  Country: SE (occurrence: SE)
  Receive Date: 20200316
  Receipt Date: 20200316
  Transmission Date: 20200409
  Serious: Yes (Hospitalization)
  Sender: FDA-Public Use
  Company Number: SE-ACCORD-175759

PATIENT
  Age: 81 Year
  Sex: Male

DRUGS (2)
  1. RIFAMPICIN [Concomitant]
     Active Substance: RIFAMPIN
     Dates: start: 20191126, end: 20200213
  2. DAPTOMYCIN. [Suspect]
     Active Substance: DAPTOMYCIN
     Indication: DEVICE RELATED INFECTION
     Dates: start: 20191126, end: 20200213

REACTIONS (1)
  - Interstitial lung disease [Not Recovered/Not Resolved]

NARRATIVE: CASE EVENT DATE: 20200128
